FAERS Safety Report 6599473-8 (Version None)
Quarter: 2010Q1

REPORT INFORMATION
  Report Type: 
  Country: None (occurrence: None)
  Receive Date: 20100224
  Receipt Date: 20100216
  Transmission Date: 20100710
  Serious: Yes (Other)
  Sender: FDA-Public Use
  Company Number: US-BAYER-201011848BCC

PATIENT
  Age: 61 Year
  Sex: Female
  Weight: 98 kg

DRUGS (2)
  1. ALEVE (CAPLET) [Suspect]
     Indication: ARTHRALGIA
     Dosage: UNIT DOSE: 220 MG
     Route: 065
     Dates: start: 20020401, end: 20020101
  2. LACTAID [Concomitant]
     Dosage: UNIT DOSE: 1 DF

REACTIONS (2)
  - ABDOMINAL PAIN UPPER [None]
  - GASTRIC ULCER [None]
